FAERS Safety Report 11230750 (Version 1)
Quarter: 2015Q3

REPORT INFORMATION
  Report Type: Spontaneous
  Country: FR (occurrence: FR)
  Receive Date: 20150701
  Receipt Date: 20150701
  Transmission Date: 20151125
  Serious: Yes (Hospitalization)
  Sender: FDA-Public Use
  Company Number: FR-ROCHE-1599960

PATIENT
  Age: 78 Year
  Sex: Female

DRUGS (11)
  1. DIFFU K [Concomitant]
     Active Substance: POTASSIUM CHLORIDE
  2. ATORVASTATIN [Concomitant]
     Active Substance: ATORVASTATIN
  3. DIGOXIN. [Concomitant]
     Active Substance: DIGOXIN
     Route: 065
     Dates: end: 201506
  4. LERCAN [Concomitant]
     Active Substance: LERCANIDIPINE
     Route: 065
     Dates: end: 201505
  5. MABTHERA [Suspect]
     Active Substance: RITUXIMAB
     Route: 042
     Dates: start: 20150409
  6. ENDOXAN [Suspect]
     Active Substance: CYCLOPHOSPHAMIDE
     Indication: PEMPHIGOID
     Route: 048
     Dates: start: 20150219, end: 20150409
  7. INEXIUM [Concomitant]
     Active Substance: ESOMEPRAZOLE
     Route: 065
     Dates: end: 201505
  8. KARDEGIC [Concomitant]
     Active Substance: ASPIRIN LYSINE
     Route: 065
     Dates: end: 201505
  9. DISULONE [Suspect]
     Active Substance: DAPSONE\FERROUS OXALATE
     Indication: PEMPHIGOID
     Route: 048
     Dates: start: 20150213, end: 20150506
  10. CACIT D3 [Concomitant]
     Active Substance: CALCIUM\CHOLECALCIFEROL
     Route: 065
     Dates: end: 201505
  11. MABTHERA [Suspect]
     Active Substance: RITUXIMAB
     Indication: PEMPHIGOID
     Route: 042
     Dates: start: 20150325

REACTIONS (2)
  - Aplasia [Not Recovered/Not Resolved]
  - Pyrexia [Unknown]

NARRATIVE: CASE EVENT DATE: 20150506
